FAERS Safety Report 7954837-2 (Version None)
Quarter: 2011Q4

REPORT INFORMATION
  Report Type: 
  Country: None (occurrence: None)
  Receive Date: 20111202
  Receipt Date: 20111129
  Transmission Date: 20120403
  Serious: Yes (Death, Hospitalization)
  Sender: FDA-Public Use
  Company Number: US-ACTELION-A-US2011-52635

PATIENT

DRUGS (4)
  1. OXYGEN [Concomitant]
  2. ASPIRIN [Concomitant]
  3. CALCIUM CHANNEL BLOCKERS [Concomitant]
  4. TRACLEER [Suspect]
     Indication: PULMONARY ARTERIAL HYPERTENSION
     Dosage: UNK MG, UNK
     Route: 048
     Dates: start: 20110715

REACTIONS (6)
  - DEATH [None]
  - FATIGUE [None]
  - HYPONATRAEMIA [None]
  - PULMONARY OEDEMA [None]
  - DYSPNOEA [None]
  - FLUID RETENTION [None]
